FAERS Safety Report 7705230-9 (Version None)
Quarter: 2011Q3

REPORT INFORMATION
  Report Type: 
  Country: None (occurrence: None)
  Receive Date: 20110818
  Receipt Date: 20110804
  Transmission Date: 20111222
  Serious: Yes (Disabling)
  Sender: FDA-Public Use
  Company Number: AUR-APL-2011-04289

PATIENT
  Age: 48 Year
  Sex: Female
  Weight: 90.71 kg

DRUGS (8)
  1. AMOXICILLIN [Concomitant]
  2. SERTRALINE HYDROCHLORIDE [Suspect]
     Indication: PRODUCT USED FOR UNKNOWN INDICATION
     Dates: start: 20110711
  3. DAKTACORT (DAKTACORT) [Concomitant]
  4. OLIVE OIL (OLEA EUROPAEA OIL) [Concomitant]
  5. MORPHINE SULPHATE (MORPHINE SULPHATE) [Concomitant]
  6. ZOPICLONE (ZOPICLONE) [Concomitant]
  7. LEVOTHYROXINE SODIUM [Concomitant]
  8. MIRTAZAPINE [Concomitant]

REACTIONS (2)
  - THROAT TIGHTNESS [None]
  - FACE OEDEMA [None]
